FAERS Safety Report 6194447-3 (Version None)
Quarter: 2009Q2

REPORT INFORMATION
  Report Type: 
  Country: None (occurrence: None)
  Receive Date: 20090515
  Receipt Date: 20090506
  Transmission Date: 20091009
  Serious: Yes (Death)
  Sender: FDA-Public Use
  Company Number: GXKR2009FR05288

PATIENT
  Age: 88 Year
  Sex: Female

DRUGS (11)
  1. CITALOPRAM HYDROBROMIDE [Suspect]
     Dosage: ORAL
     Route: 048
     Dates: start: 20081210
  2. COUMADIN [Suspect]
     Dosage: 4 MG, DAILY, ORAL; 6 MG/DAY, ORAL
     Route: 048
     Dates: start: 20081216, end: 20081218
  3. COUMADIN [Suspect]
     Dosage: 4 MG, DAILY, ORAL; 6 MG/DAY, ORAL
     Route: 048
     Dates: start: 20081219, end: 20081224
  4. LOVENOX [Suspect]
     Indication: ANTICOAGULANT THERAPY
     Dosage: 4000 IU, SUBCUTANEOUS; 6000 IU/DAY, SUBCUTANEOUS
     Route: 058
     Dates: start: 20081209, end: 20081215
  5. LOVENOX [Suspect]
     Indication: ANTICOAGULANT THERAPY
     Dosage: 4000 IU, SUBCUTANEOUS; 6000 IU/DAY, SUBCUTANEOUS
     Route: 058
     Dates: start: 20081216
  6. HEPARIN [Concomitant]
  7. POLYETHYLENE GLYCOL 3350 AND ELECTOLYTES [Concomitant]
  8. GAVISCON/OLD FORM/ (ALGENIC ACID, ALUMINUM HYDROXIDE GEL, DRIED, MAGNE [Concomitant]
  9. PANTOPRAZOLE SODIUM [Concomitant]
  10. CARTEOL (BENZALKONIUM CHLORIDE, CARTEOLOL HYDROCHLORIDE) [Concomitant]
  11. COSOPT [Concomitant]

REACTIONS (4)
  - DRUG INTERACTION [None]
  - GASTROINTESTINAL HAEMORRHAGE [None]
  - INTERNATIONAL NORMALISED RATIO INCREASED [None]
  - OVERDOSE [None]
